FAERS Safety Report 6302965-X (Version None)
Quarter: 2009Q3

REPORT INFORMATION
  Report Type: 
  Country: None (occurrence: None)
  Receive Date: 20090810
  Receipt Date: 20090804
  Transmission Date: 20100115
  Serious: Yes (Hospitalization)
  Sender: FDA-Public Use
  Company Number: B0587836A

PATIENT
  Sex: Male

DRUGS (6)
  1. RHYTHMOL [Suspect]
     Indication: WOLFF-PARKINSON-WHITE SYNDROME
     Route: 048
     Dates: start: 20030101
  2. VASTEN [Suspect]
     Dosage: 20MG PER DAY
     Route: 048
     Dates: start: 19980101
  3. ACETAMINOPHEN [Suspect]
     Indication: PAIN
     Dosage: 3G PER DAY
     Route: 048
     Dates: end: 20090707
  4. MAALOX [Suspect]
     Route: 048
     Dates: start: 20090630
  5. LODINE [Suspect]
     Indication: PAIN
     Dosage: 600MG PER DAY
     Route: 048
     Dates: start: 20040101, end: 20090707
  6. UNKNOWN MEDICATION [Concomitant]
     Indication: DRUG USE FOR UNKNOWN INDICATION
     Route: 065

REACTIONS (1)
  - PANCREATITIS ACUTE [None]
